FAERS Safety Report 15815591 (Version 3)
Quarter: 2019Q2

REPORT INFORMATION
  Report Type: Report from Study
  Country: LT (occurrence: LT)
  Receive Date: 20190112
  Receipt Date: 20190418
  Transmission Date: 20190711
  Serious: Yes (Death, Life-Threatening, Hospitalization)
  Sender: FDA-Public Use
  Company Number: LT-B.I. PHARMACEUTICALS,INC./RIDGEFIELD-2018-BI-060179

PATIENT
  Age: 74 Year
  Sex: Female
  Weight: 68 kg

DRUGS (4)
  1. PERINDOPRILUM [Concomitant]
     Indication: HYPERTENSION
     Route: 048
     Dates: start: 2014, end: 20190310
  2. INDAPAMIDUM [Concomitant]
     Indication: HYPERTENSION
     Route: 048
     Dates: start: 2014, end: 20190310
  3. GABAPENTINUM [Concomitant]
     Indication: POLYNEUROPATHY
     Route: 048
     Dates: start: 201801, end: 20190310
  4. VARGATEF [Suspect]
     Active Substance: NINTEDANIB
     Indication: LUNG ADENOCARCINOMA
     Route: 048
     Dates: start: 20180920, end: 20181211

REACTIONS (2)
  - Vena cava thrombosis [Recovered/Resolved]
  - Malignant neoplasm progression [Fatal]

NARRATIVE: CASE EVENT DATE: 20181212
